FAERS Safety Report 12582352 (Version 1)
Quarter: 2016Q3

REPORT INFORMATION
  Report Type: Spontaneous
  Country: US (occurrence: None)
  Receive Date: 20160721
  Receipt Date: 20160721
  Transmission Date: 20161109
  Serious: Yes (Other)
  Sender: FDA-Public Use
  Company Number: None

PATIENT
  Age: 63 Year
  Sex: Female
  Weight: 58.97 kg

DRUGS (4)
  1. CALCIUM [Concomitant]
     Active Substance: CALCIUM
  2. VITAMIN D [Concomitant]
     Active Substance: CHOLECALCIFEROL
  3. MAGNESIUM [Concomitant]
     Active Substance: MAGNESIUM
  4. CICLOPIROX NAIL LACQUER, 8 ML [Suspect]
     Active Substance: CICLOPIROX
     Indication: ONYCHOMYCOSIS
     Dosage: 1 DROP TWICE A DAY BRUSHED ON TOENAILS
     Route: 061
     Dates: start: 20140104, end: 20140715

REACTIONS (2)
  - Nail discolouration [None]
  - Nail disorder [None]

NARRATIVE: CASE EVENT DATE: 20140715
